FAERS Safety Report 7609138-9 (Version None)
Quarter: 2011Q3

REPORT INFORMATION
  Report Type: 
  Country: None (occurrence: None)
  Receive Date: 20110714
  Receipt Date: 20110707
  Transmission Date: 20111222
  Serious: Yes (Congenital Anomaly)
  Sender: FDA-Public Use
  Company Number: GB-PFIZER INC-2010030033

PATIENT
  Sex: Female
  Weight: 1.9 kg

DRUGS (2)
  1. HUMAN PAPILLOMAVIRUS VACCINE [Suspect]
     Indication: PROPHYLAXIS
     Dosage: 1 DF, 1X/DAY
     Route: 064
     Dates: start: 20090727, end: 20090727
  2. DEPO-PROVERA [Suspect]
     Indication: PRODUCT USED FOR UNKNOWN INDICATION
     Route: 064

REACTIONS (4)
  - CLEFT PALATE [None]
  - MATERNAL EXPOSURE DURING PREGNANCY [None]
  - PREMATURE BABY [None]
  - SEPSIS [None]
